FAERS Safety Report 7806055-6 (Version None)
Quarter: 2011Q4

REPORT INFORMATION
  Report Type: 
  Country: None (occurrence: None)
  Receive Date: 20111011
  Receipt Date: 20111001
  Transmission Date: 20120403
  Serious: Yes (Death, Other)
  Sender: FDA-Public Use
  Company Number: CO-GENZYME-CLOF-1001847

PATIENT
  Age: 11 Year
  Sex: Male
  Weight: 41 kg

DRUGS (5)
  1. ETOPOSIDE [Suspect]
     Indication: ACUTE LYMPHOCYTIC LEUKAEMIA
     Dosage: 100/M2 X 5 DAYS
     Route: 065
  2. DEXAMETHASONE [Concomitant]
     Indication: PRODUCT USED FOR UNKNOWN INDICATION
     Dosage: 4 MG, TID
     Route: 065
  3. HYDROXYZINE [Concomitant]
     Indication: PRODUCT USED FOR UNKNOWN INDICATION
     Dosage: 35 MG, QD
     Route: 042
  4. CLOFARABINE [Suspect]
     Indication: ACUTE LYMPHOCYTIC LEUKAEMIA
     Dosage: 40 MG/M2, QDX5
     Route: 065
     Dates: start: 20110505
  5. CYCLOPHOSPHAMIDE [Suspect]
     Indication: ACUTE LYMPHOCYTIC LEUKAEMIA
     Dosage: 400/M2 X 5 DAYS
     Route: 065

REACTIONS (6)
  - FLUID RETENTION [None]
  - FEBRILE NEUTROPENIA [None]
  - VOMITING [None]
  - DEATH [None]
  - CHEST PAIN [None]
  - CAPILLARY LEAK SYNDROME [None]
